FAERS Safety Report 24388010 (Version 1)
Quarter: 2024Q4

REPORT INFORMATION
  Report Type: Spontaneous
  Country: US (occurrence: US)
  Receive Date: 20241002
  Receipt Date: 20241002
  Transmission Date: 20250114
  Serious: No
  Sender: TEVA
  Company Number: US-TEVA-VS-3246430

PATIENT
  Sex: Female

DRUGS (1)
  1. TERIPARATIDE [Suspect]
     Active Substance: TERIPARATIDE
     Indication: Product used for unknown indication
     Dosage: 600 MCG / 2.4 ML
     Route: 065
     Dates: start: 20240615

REACTIONS (3)
  - Vertigo [Unknown]
  - Device malfunction [Unknown]
  - Product dose omission issue [Unknown]
